FAERS Safety Report 18483854 (Version 2)
Quarter: 2024Q2

REPORT INFORMATION
  Report Type: Spontaneous
  Country: CA (occurrence: CA)
  Receive Date: 20201110
  Receipt Date: 20240402
  Transmission Date: 20240715
  Serious: Yes (Hospitalization, Other)
  Sender: FDA-Public Use
  Company Number: CA-JNJFOC-20201105030

PATIENT

DRUGS (21)
  1. INFLIXIMAB [Suspect]
     Active Substance: INFLIXIMAB
     Indication: Juvenile idiopathic arthritis
     Route: 041
  2. ACTEMRA [Suspect]
     Active Substance: TOCILIZUMAB
     Indication: Juvenile idiopathic arthritis
     Route: 042
  3. ACTEMRA [Suspect]
     Active Substance: TOCILIZUMAB
     Route: 042
  4. ACTEMRA [Suspect]
     Active Substance: TOCILIZUMAB
     Route: 042
  5. ANAKINRA [Suspect]
     Active Substance: ANAKINRA
     Indication: Juvenile idiopathic arthritis
     Route: 058
  6. ENBREL [Suspect]
     Active Substance: ETANERCEPT
     Indication: Juvenile idiopathic arthritis
     Route: 058
  7. ENBREL [Suspect]
     Active Substance: ETANERCEPT
     Route: 058
  8. INFLIXIMAB [Suspect]
     Active Substance: INFLIXIMAB
     Indication: Juvenile idiopathic arthritis
     Route: 042
  9. INFLIXIMAB [Suspect]
     Active Substance: INFLIXIMAB
     Route: 065
  10. IMMUNE GLOBULIN NOS [Suspect]
     Active Substance: IMMUNE GLOBULIN NOS
     Indication: Juvenile idiopathic arthritis
     Route: 042
  11. IMMUNE GLOBULIN NOS [Suspect]
     Active Substance: IMMUNE GLOBULIN NOS
  12. HUMIRA [Suspect]
     Active Substance: ADALIMUMAB
     Indication: Juvenile idiopathic arthritis
     Route: 058
  13. HYDROXYCHLOROQUINE SULFATE [Suspect]
     Active Substance: HYDROXYCHLOROQUINE SULFATE
     Indication: Juvenile idiopathic arthritis
     Route: 048
  14. METHOTREXATE [Suspect]
     Active Substance: METHOTREXATE
     Indication: Juvenile idiopathic arthritis
     Route: 058
  15. NAPROXEN [Suspect]
     Active Substance: NAPROXEN
     Indication: Juvenile idiopathic arthritis
     Route: 065
  16. ORENCIA [Suspect]
     Active Substance: ABATACEPT
     Indication: Juvenile idiopathic arthritis
     Route: 042
  17. PREDNISONE [Suspect]
     Active Substance: PREDNISONE
     Indication: Juvenile idiopathic arthritis
     Route: 048
  18. PREDNISONE [Suspect]
     Active Substance: PREDNISONE
     Route: 048
  19. SULFASALAZINE [Suspect]
     Active Substance: SULFASALAZINE
     Indication: Juvenile idiopathic arthritis
     Route: 048
  20. TRIAMCINOLONE [Suspect]
     Active Substance: TRIAMCINOLONE
     Indication: Juvenile idiopathic arthritis
     Route: 065
  21. TRIAMCINOLONE HEXACETONIDE [Suspect]
     Active Substance: TRIAMCINOLONE HEXACETONIDE
     Indication: Juvenile idiopathic arthritis
     Route: 065

REACTIONS (28)
  - Adrenal insufficiency [Not Recovered/Not Resolved]
  - Polyarthritis [Not Recovered/Not Resolved]
  - Antibody test positive [Not Recovered/Not Resolved]
  - Arthritis [Not Recovered/Not Resolved]
  - Arthropathy [Not Recovered/Not Resolved]
  - Body height below normal [Not Recovered/Not Resolved]
  - Bone density decreased [Not Recovered/Not Resolved]
  - Intentional product use issue [Not Recovered/Not Resolved]
  - Off label use [Not Recovered/Not Resolved]
  - Mobility decreased [Not Recovered/Not Resolved]
  - Red blood cell sedimentation rate increased [Not Recovered/Not Resolved]
  - Obesity [Not Recovered/Not Resolved]
  - Loss of personal independence in daily activities [Not Recovered/Not Resolved]
  - Human antichimeric antibody positive [Not Recovered/Not Resolved]
  - C-reactive protein increased [Not Recovered/Not Resolved]
  - Synovitis [Not Recovered/Not Resolved]
  - Drug intolerance [Not Recovered/Not Resolved]
  - Vomiting [Not Recovered/Not Resolved]
  - Septic shock [Not Recovered/Not Resolved]
  - Juvenile idiopathic arthritis [Not Recovered/Not Resolved]
  - Drug specific antibody [Not Recovered/Not Resolved]
  - Drug ineffective [Not Recovered/Not Resolved]
  - Condition aggravated [Not Recovered/Not Resolved]
  - Diarrhoea [Not Recovered/Not Resolved]
  - Dizziness [Not Recovered/Not Resolved]
  - Nausea [Not Recovered/Not Resolved]
  - Psoriasis [Not Recovered/Not Resolved]
  - Underdose [Unknown]
